FAERS Safety Report 24562056 (Version 6)
Quarter: 2025Q1

REPORT INFORMATION
  Report Type: Spontaneous
  Country: RO (occurrence: RO)
  Receive Date: 20241029
  Receipt Date: 20250106
  Transmission Date: 20250409
  Serious: Yes (Hospitalization, Other)
  Sender: NOVARTIS
  Company Number: RO-002147023-NVSC2024RO208491

PATIENT
  Age: 47 Year
  Sex: Female

DRUGS (2)
  1. IMATINIB [Suspect]
     Active Substance: IMATINIB
     Indication: Hypereosinophilic syndrome
     Route: 048
     Dates: start: 2018, end: 202210
  2. IMATINIB [Suspect]
     Active Substance: IMATINIB
     Indication: Eosinophilia

REACTIONS (3)
  - Upper gastrointestinal haemorrhage [Recovered/Resolved]
  - Porto-sinusoidal vascular disorder [Unknown]
  - Therapy partial responder [Unknown]

NARRATIVE: CASE EVENT DATE: 20201001
